FAERS Safety Report 26187973 (Version 1)
Quarter: 2025Q4

REPORT INFORMATION
  Report Type: Spontaneous
  Country: US (occurrence: US)
  Receive Date: 20251222
  Receipt Date: 20251222
  Transmission Date: 20260118
  Serious: Yes (Death, Life-Threatening, Hospitalization)
  Sender: AMGEN
  Company Number: US-AMGEN-USASP2025248613

PATIENT
  Age: 4 Year
  Sex: Male

DRUGS (2)
  1. PREDNISONE [Suspect]
     Active Substance: PREDNISONE
     Indication: Duchenne muscular dystrophy
     Dosage: UNK, FROM FOUR TO SEVEN YEARS OF AGE
     Route: 065
  2. DEFLAZACORT [Concomitant]
     Active Substance: DEFLAZACORT
     Indication: Duchenne muscular dystrophy

REACTIONS (5)
  - Cardiac arrest [Fatal]
  - Cardiac failure [Unknown]
  - McLeod neuroacanthocytosis syndrome [Unknown]
  - Hypotension [Unknown]
  - Off label use [Unknown]
